FAERS Safety Report 7166614-3 (Version None)
Quarter: 2010Q4

REPORT INFORMATION
  Report Type: 
  Country: None (occurrence: None)
  Receive Date: 20101216
  Receipt Date: 20101209
  Transmission Date: 20110411
  Serious: Yes (Life-Threatening)
  Sender: FDA-Public Use
  Company Number: GB-PFIZER INC-2010168780

PATIENT
  Sex: Female
  Weight: 80 kg

DRUGS (8)
  1. ECALTA [Suspect]
     Indication: VULVAL CELLULITIS
     Dosage: 200 MG, SINGLE
     Route: 042
     Dates: start: 20101116, end: 20101116
  2. DAPTOMYCIN [Concomitant]
     Indication: VULVAL CELLULITIS
     Dosage: 480 MG, 1X/DAY
     Route: 042
     Dates: start: 20101114
  3. DICLOFENAC [Concomitant]
     Dosage: 50 MG, 3X/DAY
  4. GENTAMICIN [Concomitant]
     Indication: VULVAL CELLULITIS
     Dosage: 560 MG, 1X/DAY
     Route: 042
     Dates: start: 20101114, end: 20101117
  5. METRONIDAZOLE [Concomitant]
     Indication: VULVAL CELLULITIS
     Dosage: 500 MG, 3X/DAY
     Route: 042
     Dates: start: 20101113
  6. PARACETAMOL [Concomitant]
     Dosage: 1 G, 4X/DAY
  7. QUETIAPINE [Concomitant]
     Indication: BIPOLAR DISORDER
     Dosage: 300 MG, 1X/DAY
     Route: 048
     Dates: start: 20101115
  8. TOPIRAMATE [Concomitant]
     Indication: MIGRAINE
     Dosage: 50 MG, 2X/DAY
     Route: 048
     Dates: start: 20101115

REACTIONS (4)
  - ABDOMINAL PAIN [None]
  - DIZZINESS [None]
  - DYSPNOEA [None]
  - OXYGEN SATURATION DECREASED [None]
